FAERS Safety Report 6220822-4 (Version None)
Quarter: 2009Q2

REPORT INFORMATION
  Report Type: 
  Country: None (occurrence: None)
  Receive Date: 20090610
  Receipt Date: 20081209
  Transmission Date: 20091009
  Serious: No
  Sender: FDA-Public Use
  Company Number: US-TYCO HEALTHCARE/MALLINCKRODT-T200802090

PATIENT

DRUGS (2)
  1. OCTREOSCAN [Suspect]
     Indication: SOMATOSTATIN RECEPTOR SCAN
     Dosage: 6.2 MCI, SINGLE
     Dates: start: 20081208, end: 20081208
  2. OCTREOSCAN [Suspect]
     Dosage: UNK
     Dates: start: 20081209, end: 20081209

REACTIONS (1)
  - DRUG INEFFECTIVE [None]
